FAERS Safety Report 26187807 (Version 1)
Quarter: 2025Q4

REPORT INFORMATION
  Report Type: Spontaneous
  Country: US (occurrence: None)
  Receive Date: 20251222
  Receipt Date: 20251222
  Transmission Date: 20260118
  Serious: Yes (Other)
  Sender: FDA-CTU
  Company Number: None

PATIENT
  Age: 38 Year
  Sex: Female
  Weight: 55.35 kg

DRUGS (5)
  1. CLARISCAN [Suspect]
     Active Substance: GADOTERATE MEGLUMINE
     Indication: Magnetic resonance imaging head
     Route: 042
     Dates: start: 20251121, end: 20251121
  2. Garden of Life Women^s Once Daily Multivitamin [Concomitant]
  3. Nordic Naturals Algae Omega supplement [Concomitant]
  4. MOM^s Organic Market b12 [Concomitant]
  5. SOLGAR GENTLE IRON [Concomitant]

REACTIONS (4)
  - Seizure [None]
  - Head injury [None]
  - Pollakiuria [None]
  - Scleral discolouration [None]

NARRATIVE: CASE EVENT DATE: 20251121
